FAERS Safety Report 5200543-7 (Version None)
Quarter: 2006Q4

REPORT INFORMATION
  Report Type: 
  Country: None (occurrence: None)
  Receive Date: 20060929
  Receipt Date: 20051110
  Transmission Date: 20070319
  Serious: Yes (Hospitalization)
  Sender: FDA-Public Use
  Company Number: US-JNJFOC-20051103033

PATIENT
  Age: 47 Year
  Sex: Female
  Weight: 77 kg

DRUGS (2)
  1. ORTHO-NOVUM 1/35 [Suspect]
     Indication: VAGINAL HAEMORRHAGE
     Dosage: 1 DOSE(S), 4 IN 1 DAY, ORAL
     Route: 048
     Dates: end: 20051109
  2. DEPO-PROVERA SUSPENSION/INJ [Concomitant]

REACTIONS (1)
  - ARTERIAL THROMBOSIS [None]
